FAERS Safety Report 7740864-7 (Version None)
Quarter: 2011Q3

REPORT INFORMATION
  Report Type: 
  Country: None (occurrence: None)
  Receive Date: 20110909
  Receipt Date: 20110830
  Transmission Date: 20111222
  Serious: Yes (Death, Hospitalization)
  Sender: FDA-Public Use
  Company Number: JP-CELGENEUS-087-50794-11062594

PATIENT
  Age: 75 Year
  Sex: Male

DRUGS (14)
  1. VIDAZA [Suspect]
     Dosage: 100 MILLIGRAM
     Route: 041
     Dates: start: 20110530, end: 20110601
  2. DIFLUCAN [Concomitant]
     Route: 065
     Dates: start: 20110523, end: 20110525
  3. PRIMPERAN TAB [Concomitant]
     Route: 065
     Dates: start: 20110525, end: 20110601
  4. PRIMOBOLAN-DEPOT INJ [Concomitant]
     Route: 065
     Dates: end: 20110613
  5. MEVAN [Concomitant]
     Route: 065
     Dates: end: 20110613
  6. GLAKAY [Concomitant]
     Route: 065
     Dates: end: 20110613
  7. TRANEXAMIC ACID [Concomitant]
     Route: 065
     Dates: end: 20110613
  8. SLOWHEIM [Concomitant]
     Route: 065
     Dates: start: 20110524, end: 20110613
  9. VANCOMYCIN HCL [Concomitant]
     Route: 065
     Dates: start: 20110523, end: 20110525
  10. SHAKUYAKU-KANZO-TO [Concomitant]
     Route: 065
     Dates: start: 20110525
  11. VIDAZA [Suspect]
     Indication: MYELODYSPLASTIC SYNDROME
     Dosage: 100 MILLIGRAM
     Route: 041
     Dates: start: 20110525, end: 20110527
  12. LEBENIN [Concomitant]
     Route: 065
     Dates: end: 20110613
  13. URIEF [Concomitant]
     Route: 065
     Dates: end: 20110613
  14. ADONA [Concomitant]
     Route: 065
     Dates: end: 20110613

REACTIONS (4)
  - BLOOD UREA INCREASED [None]
  - SEPSIS [None]
  - BLOOD CREATININE INCREASED [None]
  - WHITE BLOOD CELL COUNT DECREASED [None]
